FAERS Safety Report 17204415 (Version 2)
Quarter: 2020Q1

REPORT INFORMATION
  Report Type: Report from Study
  Country: FR (occurrence: FR)
  Receive Date: 20191226
  Receipt Date: 20200113
  Transmission Date: 20200409
  Serious: Yes (Hospitalization, Other)
  Sender: FDA-Public Use
  Company Number: FR-JAZZ-2019-FR-017792

PATIENT

DRUGS (1)
  1. DEFITELIO [Suspect]
     Active Substance: DEFIBROTIDE SODIUM
     Indication: VENOOCCLUSIVE LIVER DISEASE
     Dosage: UNK
     Dates: start: 20190416, end: 20190429

REACTIONS (6)
  - Vena cava thrombosis [Recovered/Resolved]
  - Off label use [Unknown]
  - Viral haemorrhagic cystitis [Recovered/Resolved with Sequelae]
  - Cytomegalovirus colitis [Recovered/Resolved with Sequelae]
  - Haematemesis [Recovered/Resolved]
  - Melaena [Recovered/Resolved]

NARRATIVE: CASE EVENT DATE: 20190416
